FAERS Safety Report 6213574-5 (Version None)
Quarter: 2009Q2

REPORT INFORMATION
  Report Type: 
  Country: None (occurrence: None)
  Receive Date: 20090603
  Receipt Date: 20090526
  Transmission Date: 20091009
  Serious: Yes (Hospitalization, Other)
  Sender: FDA-Public Use
  Company Number: US-ABBOTT-09P-163-0575665-00

PATIENT
  Sex: Female
  Weight: 81.266 kg

DRUGS (9)
  1. HUMIRA [Suspect]
     Indication: CROHN'S DISEASE
     Route: 058
     Dates: start: 20070101, end: 20080101
  2. HUMIRA [Suspect]
     Route: 058
     Dates: start: 20090201
  3. PENTASA [Concomitant]
     Indication: CROHN'S DISEASE
     Route: 048
  4. LEVSIN SL [Concomitant]
     Indication: CROHN'S DISEASE
     Route: 060
  5. FLAGYL [Concomitant]
     Indication: SKIN FISSURES
     Route: 048
  6. QUESTRAN [Concomitant]
     Indication: DIARRHOEA
     Route: 048
  7. POTASSIUM CHLORIDE [Concomitant]
     Indication: BLOOD POTASSIUM DECREASED
     Route: 042
  8. ZOFRAN [Concomitant]
     Indication: NAUSEA
     Dosage: PO/IV PT HAS MEDI PORT AS NEEDED
  9. PHNERGAN [Concomitant]
     Indication: NAUSEA
     Dosage: PO/IV PT HAS MEDI-PORT AS NEEDED

REACTIONS (8)
  - BRONCHITIS [None]
  - CATHETER RELATED INFECTION [None]
  - COLECTOMY [None]
  - CROHN'S DISEASE [None]
  - DRUG DOSE OMISSION [None]
  - OSTEOMYELITIS [None]
  - OSTEONECROSIS [None]
  - POST PROCEDURAL INFECTION [None]
